FAERS Safety Report 21246760 (Version 1)
Quarter: 2022Q3

REPORT INFORMATION
  Report Type: Report from Study
  Country: AU (occurrence: AU)
  Receive Date: 20220824
  Receipt Date: 20220824
  Transmission Date: 20221027
  Serious: Yes (Other)
  Sender: FDA-Public Use
  Company Number: AU-JNJFOC-20220833670

PATIENT
  Age: 57 Year
  Sex: Male
  Weight: 80 kg

DRUGS (1)
  1. REMICADE [Suspect]
     Active Substance: INFLIXIMAB
     Indication: Colitis ulcerative
     Route: 041
     Dates: start: 20220516

REACTIONS (2)
  - Colitis ulcerative [Recovering/Resolving]
  - Influenza [Unknown]

NARRATIVE: CASE EVENT DATE: 20220808
